FAERS Safety Report 4315999-1 (Version None)
Quarter: 2004Q1

REPORT INFORMATION
  Report Type: 
  Country: None (occurrence: None)
  Receive Date: 20040310
  Receipt Date: 20040225
  Transmission Date: 20041129
  Serious: Yes (Hospitalization, Other)
  Sender: FDA-Public Use
  Company Number: 2004012916

PATIENT
  Age: 61 Year
  Sex: Female

DRUGS (5)
  1. NEURONTIN [Suspect]
     Indication: ILL-DEFINED DISORDER
     Dosage: 1.8 G DAILY ORAL
     Route: 048
     Dates: end: 20030923
  2. FLUCLOXACILLIN SODIUM (FLUCLOXACILLIN SODIUM) [Suspect]
     Indication: POSTOPERATIVE INFECTION
     Dosage: 6 GRAM DAILY ORAL
     Route: 048
     Dates: start: 20030801, end: 20030921
  3. CEFADROXIL (CEFADROXIL) [Suspect]
     Indication: URINARY TRACT INFECTION
     Dosage: ORAL
     Route: 048
     Dates: end: 20030921
  4. INSULIN LISPRO [Concomitant]
  5. INSULIN GLARGINE [Concomitant]

REACTIONS (10)
  - AGRANULOCYTOSIS [None]
  - APLASTIC ANAEMIA [None]
  - CHILLS [None]
  - CYTOMEGALOVIRUS INFECTION [None]
  - ERYTHROPOIESIS ABNORMAL [None]
  - FUNGAL INFECTION [None]
  - GRANULOCYTOSIS [None]
  - PANCYTOPENIA [None]
  - PSEUDOMONAS INFECTION [None]
  - PYREXIA [None]
